FAERS Safety Report 24894005 (Version 1)
Quarter: 2025Q1

REPORT INFORMATION
  Report Type: Spontaneous
  Country: CH (occurrence: CH)
  Receive Date: 20250128
  Receipt Date: 20250128
  Transmission Date: 20250408
  Serious: Yes (Other)
  Sender: RANBAXY
  Company Number: CH-SUN PHARMACEUTICAL INDUSTRIES LTD-2025R1-490818

PATIENT
  Age: 26 Year
  Sex: Male

DRUGS (2)
  1. METHYLPREDNISOLONE [Suspect]
     Active Substance: METHYLPREDNISOLONE
     Indication: Cystinosis
     Route: 042
  2. PREDNISONE [Suspect]
     Active Substance: PREDNISONE
     Indication: Cystinosis
     Route: 065

REACTIONS (4)
  - Generalised oedema [Unknown]
  - Condition aggravated [Not Recovered/Not Resolved]
  - Diabetes mellitus [Unknown]
  - Liver injury [Unknown]
